FAERS Safety Report 23471128 (Version 1)
Quarter: 2024Q1

REPORT INFORMATION
  Report Type: Other
  Country: None (occurrence: US)
  Receive Date: 20240202
  Receipt Date: 20240202
  Transmission Date: 20240410
  Serious: No
  Sender: FDA-Public Use
  Company Number: US-Nostrum Laboratories, Inc.-2152491

PATIENT
  Age: 77 Year
  Sex: Male

DRUGS (2)
  1. SUCRALFATE [Suspect]
     Active Substance: SUCRALFATE
     Indication: Peptic ulcer
     Route: 048
  2. MIRABEGRON [Concomitant]
     Active Substance: MIRABEGRON
     Route: 048

REACTIONS (1)
  - Polyuria [Unknown]
